FAERS Safety Report 19106433 (Version 4)
Quarter: 2021Q4

REPORT INFORMATION
  Report Type: Report from Study
  Country: CA (occurrence: CA)
  Receive Date: 20210407
  Receipt Date: 20211010
  Transmission Date: 20220303
  Serious: Yes (Other)
  Sender: FDA-Public Use
  Company Number: CA-JNJFOC-20210347699

PATIENT
  Age: 27 Year
  Sex: Female
  Weight: 113.1 kg

DRUGS (1)
  1. SIMPONI [Suspect]
     Active Substance: GOLIMUMAB
     Indication: Psoriatic arthropathy
     Route: 042
     Dates: start: 20160812

REACTIONS (3)
  - Hepatitis C [Recovered/Resolved]
  - Tooth abscess [Recovered/Resolved]
  - Oral infection [Recovered/Resolved]

NARRATIVE: CASE EVENT DATE: 20210101
